FAERS Safety Report 6126613-7 (Version None)
Quarter: 2009Q1

REPORT INFORMATION
  Report Type: 
  Country: None (occurrence: None)
  Receive Date: 20090320
  Receipt Date: 20090305
  Transmission Date: 20090719
  Serious: Yes (Congenital Anomaly)
  Sender: FDA-Public Use
  Company Number: GB-PFIZER INC-2009180066

PATIENT

DRUGS (3)
  1. GABAPENTIN [Suspect]
     Indication: NEURALGIA
     Dosage: 300 MG, 2X/DAY
     Route: 064
     Dates: start: 20081218, end: 20090122
  2. AMITRIPTYLINE [Concomitant]
     Route: 064
  3. ACETAMINOPHEN W/ CODEINE [Concomitant]
     Route: 064

REACTIONS (2)
  - CONGENITAL ABSENCE OF CRANIAL VAULT [None]
  - DRUG EXPOSURE DURING PREGNANCY [None]
